FAERS Safety Report 20717193 (Version 2)
Quarter: 2022Q3

REPORT INFORMATION
  Report Type: Spontaneous
  Country: US (occurrence: US)
  Receive Date: 20220417
  Receipt Date: 20220911
  Transmission Date: 20221026
  Serious: No
  Sender: FDA-Public Use
  Company Number: US-SA-SAC20220414000256

PATIENT
  Sex: Female

DRUGS (1)
  1. UNISOM SLEEPTABS [Suspect]
     Active Substance: DOXYLAMINE SUCCINATE
     Indication: Sleep disorder
     Dosage: UNK
     Route: 065

REACTIONS (3)
  - Agitation [Unknown]
  - Anger [Unknown]
  - Drug ineffective [Unknown]
